FAERS Safety Report 23580783 (Version 1)
Quarter: 2024Q1

REPORT INFORMATION
  Report Type: Spontaneous
  Country: IT (occurrence: None)
  Receive Date: 20240229
  Receipt Date: 20240229
  Transmission Date: 20240410
  Serious: Yes (Hospitalization)
  Sender: FDA-Public Use
  Company Number: 2024A043503

PATIENT
  Age: 63 Year
  Sex: Female

DRUGS (1)
  1. FASENRA [Suspect]
     Active Substance: BENRALIZUMAB
     Indication: Eosinophilia
     Dosage: 30 MG/ML SUBCUTANEOUSLY EVERY 2 MONTHS, LAST DOSE IN JANUARY 2024, NEXT DOSE TO BE EVALUATED, SCH...
     Route: 058
     Dates: start: 202207, end: 202401

REACTIONS (1)
  - Large intestine polyp [Unknown]

NARRATIVE: CASE EVENT DATE: 20240207
